FAERS Safety Report 20832260 (Version 1)
Quarter: 2022Q2

REPORT INFORMATION
  Report Type: Report from Study
  Country: DE (occurrence: DE)
  Receive Date: 20220516
  Receipt Date: 20220516
  Transmission Date: 20220721
  Serious: Yes (Other)
  Sender: FDA-Public Use
  Company Number: DE-BRISTOL-MYERS SQUIBB COMPANY-BMS-2021-140968

PATIENT
  Age: 75 Year
  Sex: Male
  Weight: 81 kg

DRUGS (18)
  1. NIVOLUMAB [Suspect]
     Active Substance: NIVOLUMAB
     Indication: Metastatic renal cell carcinoma
     Dosage: 3 MILLIGRAM PER KILOGRAM/BODY WEIGHT, Q3WK
     Route: 042
     Dates: start: 20210624, end: 20210826
  2. IPILIMUMAB [Suspect]
     Active Substance: IPILIMUMAB
     Indication: Metastatic renal cell carcinoma
     Dosage: 1 MILLIGRAM/KILOGRAM/BODY WEIGHT, Q3WK
     Route: 042
     Dates: start: 20210624, end: 20210826
  3. IPILIMUMAB [Suspect]
     Active Substance: IPILIMUMAB
     Dosage: 81 MILLIGRAM, Q3WK
     Route: 042
     Dates: start: 20210805, end: 20210826
  4. NIVOLUMAB\RELATLIMAB-RMBW [Suspect]
     Active Substance: NIVOLUMAB\RELATLIMAB-RMBW
     Route: 065
     Dates: start: 20211007, end: 20211230
  5. CANDESARTAN [Concomitant]
     Active Substance: CANDESARTAN
     Indication: Cardiovascular disorder
     Dosage: 32 MILLIGRAM
     Route: 065
     Dates: start: 20211201, end: 20211201
  6. CANDESARTAN [Concomitant]
     Active Substance: CANDESARTAN
     Route: 065
     Dates: start: 20211202
  7. HYDROCHLOROTHIAZIDE [Concomitant]
     Active Substance: HYDROCHLOROTHIAZIDE
     Indication: Cardiovascular disorder
     Dosage: 12.5 MILLIGRAM
     Route: 065
  8. HYDROCHLOROTHIAZIDE [Concomitant]
     Active Substance: HYDROCHLOROTHIAZIDE
     Indication: Cerebrovascular disorder
  9. LERCANIDIPINE [Concomitant]
     Active Substance: LERCANIDIPINE
     Indication: Cardiovascular disorder
     Dosage: 10 MILLIGRAM
     Route: 065
  10. LERCANIDIPINE [Concomitant]
     Active Substance: LERCANIDIPINE
     Indication: Cerebrovascular disorder
  11. BETAXOLOL [Concomitant]
     Active Substance: BETAXOLOL
     Indication: Cerebrovascular disorder
     Dosage: 10 MILLIGRAM
     Route: 065
  12. BETAXOLOL [Concomitant]
     Active Substance: BETAXOLOL
     Indication: Cardiovascular disorder
  13. MOXONIDINE [Concomitant]
     Active Substance: MOXONIDINE
     Indication: Cardiovascular disorder
     Dosage: 0.2 MG TWICE A DAY
     Route: 065
     Dates: end: 20220211
  14. MOXONIDINE [Concomitant]
     Active Substance: MOXONIDINE
     Indication: Cerebrovascular disorder
     Route: 065
     Dates: start: 20220212
  15. NOVALGIN (METAMIZOLE SODIUM) [Concomitant]
     Active Substance: METAMIZOLE SODIUM
     Indication: Cardiovascular disorder
     Dosage: 500 MG AS NEEDED
     Route: 065
     Dates: start: 20210610
  16. NOVALGIN (METAMIZOLE SODIUM) [Concomitant]
     Active Substance: METAMIZOLE SODIUM
     Indication: Cerebrovascular disorder
  17. Nepressol [Concomitant]
     Indication: Cardiovascular disorder
     Route: 065
     Dates: start: 20210826
  18. Nepressol [Concomitant]
     Indication: Cerebrovascular disorder

REACTIONS (2)
  - Acute kidney injury [Recovering/Resolving]
  - Pulmonary embolism [Not Recovered/Not Resolved]

NARRATIVE: CASE EVENT DATE: 20210929
